FAERS Safety Report 6768895-4 (Version None)
Quarter: 2010Q2

REPORT INFORMATION
  Report Type: 
  Country: None (occurrence: None)
  Receive Date: 20100603
  Receipt Date: 20100528
  Transmission Date: 20101027
  Serious: Yes (Death, Hospitalization)
  Sender: FDA-Public Use
  Company Number: 2010SP024169

PATIENT
  Age: 54 Year
  Sex: Male
  Weight: 62.2335 kg

DRUGS (18)
  1. TEMODAR [Suspect]
     Indication: BRAIN NEOPLASM
     Dosage: 135 MG;
     Dates: start: 20100328, end: 20100417
  2. ACETAMINOPHEN [Concomitant]
  3. ATENOLOL [Concomitant]
  4. BISACODYL [Concomitant]
  5. DEXAMETHASONE [Concomitant]
  6. DEXTROSE [Concomitant]
  7. FAMOTIDINE [Concomitant]
  8. GLUCAGON [Concomitant]
  9. GLUCOSE [Concomitant]
  10. HYDROCORTISONE CREAM [Concomitant]
  11. HYDROMORPHONE [Concomitant]
  12. INSULIN ASPART [Concomitant]
  13. LEVETIRACETAM [Concomitant]
  14. LISINOPRIL [Concomitant]
  15. ONDANSETRON [Concomitant]
  16. PANTOPRAZOLE [Concomitant]
  17. POLYETHYLENE GLYCOL [Concomitant]
  18. SENOKOT [Concomitant]

REACTIONS (5)
  - ATELECTASIS [None]
  - DISEASE PROGRESSION [None]
  - FAILURE TO THRIVE [None]
  - HYPOPHAGIA [None]
  - PLEURAL EFFUSION [None]
